FAERS Safety Report 20198037 (Version 1)
Quarter: 2021Q4

REPORT INFORMATION
  Report Type: Spontaneous
  Country: US (occurrence: US)
  Receive Date: 20211217
  Receipt Date: 20211217
  Transmission Date: 20220303
  Serious: No
  Sender: FDA-Public Use
  Company Number: US-ALLERGAN-2107132US

PATIENT
  Age: 78 Year
  Sex: Female
  Weight: 53.515 kg

DRUGS (4)
  1. PREDNISOLONE ACETATE [Suspect]
     Active Substance: PREDNISOLONE ACETATE
     Indication: Inflammation
     Dosage: 1 GTT, QID
     Route: 047
     Dates: start: 20201027, end: 202101
  2. DEVICE [Suspect]
     Active Substance: DEVICE
     Indication: Glaucoma
     Dosage: UNK
     Dates: start: 20201027
  3. INSULIN NOS [Concomitant]
     Active Substance: INSULIN NOS
     Indication: Diabetes mellitus
  4. Unspecified Glaucoma eye gtts [Concomitant]
     Indication: Glaucoma
     Route: 047

REACTIONS (7)
  - Blood glucose increased [Recovered/Resolved]
  - Alopecia [Recovered/Resolved]
  - Onychoclasis [Recovered/Resolved]
  - Arthritis [Recovered/Resolved]
  - Bone pain [Recovered/Resolved]
  - Malaise [Recovered/Resolved]
  - Decreased immune responsiveness [Not Recovered/Not Resolved]
